FAERS Safety Report 9495857 (Version 2)
Quarter: 2013Q4

REPORT INFORMATION
  Report Type: Spontaneous
  Country: GB (occurrence: FR)
  Receive Date: 20130903
  Receipt Date: 20131015
  Transmission Date: 20140711
  Serious: Yes (Life-Threatening, Hospitalization, Disabling)
  Sender: FDA-Public Use
  Company Number: GB-PFIZER INC-2013248014

PATIENT
  Age: 35 Year
  Sex: Female
  Weight: 166 kg

DRUGS (1)
  1. DEPO-PROVERA [Suspect]
     Indication: CONTRACEPTION
     Dosage: 150 MG, IMMEDIATELY (STAT)
     Route: 030
     Dates: start: 20130703

REACTIONS (2)
  - Streptococcal sepsis [Recovering/Resolving]
  - Abscess [Recovering/Resolving]
